FAERS Safety Report 9550654 (Version 1)
Quarter: 2013Q3

REPORT INFORMATION
  Report Type: Spontaneous
  Country: US (occurrence: US)
  Receive Date: 20130924
  Receipt Date: 20130924
  Transmission Date: 20140515
  Serious: No
  Sender: FDA-Public Use
  Company Number: US-SANOFI-AVENTIS-2013SA043602

PATIENT
  Age: 40 Year
  Sex: Female

DRUGS (4)
  1. AUBAGIO [Suspect]
     Indication: MULTIPLE SCLEROSIS
     Route: 048
     Dates: start: 201302
  2. DESMOPRESSIN ACETATE [Concomitant]
  3. VYVANSE [Concomitant]
  4. VESICARE [Concomitant]

REACTIONS (6)
  - Pharyngitis [Unknown]
  - Furuncle [Recovered/Resolved]
  - Dysphagia [Not Recovered/Not Resolved]
  - Abdominal pain upper [Unknown]
  - Pruritus [Unknown]
  - Drug dose omission [Unknown]
